FAERS Safety Report 8777642 (Version 2)
Quarter: 2012Q4

REPORT INFORMATION
  Report Type: 
  Country: US (occurrence: US)
  Receive Date: 20120912
  Receipt Date: 20121019
  Transmission Date: 20130627
  Serious: Yes (Life-Threatening, Other)
  Sender: FDA-Public Use
  Company Number: US-ASTRAZENECA-2012SE70668

PATIENT
  Age: 49 Year
  Sex: Male

DRUGS (1)
  1. TOPROL XL [Suspect]
     Route: 048

REACTIONS (4)
  - Cardiac arrest [Unknown]
  - Nasopharyngitis [Unknown]
  - Sinus disorder [Unknown]
  - Memory impairment [Unknown]
